FAERS Safety Report 17817596 (Version 1)
Quarter: 2020Q2

REPORT INFORMATION
  Report Type: Spontaneous
  Country: IT (occurrence: IT)
  Receive Date: 20200522
  Receipt Date: 20200522
  Transmission Date: 20200714
  Serious: Yes (Other)
  Sender: FDA-Public Use
  Company Number: IT-PFIZER INC-2020200355

PATIENT
  Age: 57 Year
  Sex: Male

DRUGS (3)
  1. BENTELAN [Suspect]
     Active Substance: BETAMETHASONE SODIUM PHOSPHATE
     Indication: DRUG ABUSE
     Dosage: 2 MILLIGRAM
     Route: 065
     Dates: start: 20200209, end: 20200209
  2. PANTORC [Suspect]
     Active Substance: PANTOPRAZOLE SODIUM
     Indication: DRUG ABUSE
     Dosage: 400 MILLIGRAM
     Route: 048
     Dates: start: 20200209, end: 20200209
  3. VECLAM [Suspect]
     Active Substance: CLARITHROMYCIN
     Indication: DRUG ABUSE
     Dosage: 1000 MILLIGRAM
     Route: 048
     Dates: start: 20200209, end: 20200209

REACTIONS (2)
  - Abdominal pain upper [Recovering/Resolving]
  - Poisoning [Recovering/Resolving]

NARRATIVE: CASE EVENT DATE: 20200209
